FAERS Safety Report 17403166 (Version 1)
Quarter: 2020Q1

REPORT INFORMATION
  Report Type: Spontaneous
  Country: CN (occurrence: CN)
  Receive Date: 20200211
  Receipt Date: 20200211
  Transmission Date: 20200409
  Serious: Yes (Hospitalization, Other)
  Sender: FDA-Public Use
  Company Number: CN-JNJFOC-20200205656

PATIENT
  Sex: Male

DRUGS (1)
  1. RIVAROXABAN [Suspect]
     Active Substance: RIVAROXABAN
     Indication: DEEP VEIN THROMBOSIS
     Dosage: 2 DF, DAILY
     Route: 048
     Dates: start: 20200107

REACTIONS (7)
  - Fall [Unknown]
  - Pyrexia [Unknown]
  - Anaesthesia [Unknown]
  - Anal incontinence [Unknown]
  - Depressed level of consciousness [Unknown]
  - Urinary incontinence [Unknown]
  - Cerebral haemorrhage [Recovering/Resolving]

NARRATIVE: CASE EVENT DATE: 202001
